FAERS Safety Report 7960898-7 (Version None)
Quarter: 2011Q4

REPORT INFORMATION
  Report Type: 
  Country: None (occurrence: None)
  Receive Date: 20111201
  Receipt Date: 20111201
  Transmission Date: 20120403
  Serious: Yes (Life-Threatening, Hospitalization)
  Sender: FDA-Public Use
  Company Number: None

PATIENT
  Age: 50 Year
  Sex: Female
  Weight: 56.6996 kg

DRUGS (2)
  1. IODINE CONTRAST DYE [Suspect]
     Indication: COMPUTERISED TOMOGRAM
     Dates: start: 20111031
  2. IODINE CONTRAST DYE [Suspect]
     Indication: COMPUTERISED TOMOGRAM
     Dates: start: 20111104

REACTIONS (1)
  - CONTRAST MEDIA ALLERGY [None]
